FAERS Safety Report 9276040 (Version 1)
Quarter: 2013Q2

REPORT INFORMATION
  Report Type: Spontaneous
  Country: US (occurrence: US)
  Receive Date: 20130507
  Receipt Date: 20130507
  Transmission Date: 20140414
  Serious: No
  Sender: FDA-Public Use
  Company Number: US-009507513-1305USA001858

PATIENT
  Sex: Female

DRUGS (2)
  1. DULERA [Suspect]
     Indication: ASTHMA
     Dosage: PRN
     Route: 055
     Dates: start: 201210
  2. DILTIAZEM HYDROCHLORIDE [Concomitant]

REACTIONS (3)
  - Cough [Recovering/Resolving]
  - Dysphonia [Recovering/Resolving]
  - Product quality issue [Unknown]
